APPROVED DRUG PRODUCT: MECLOFENAMATE SODIUM
Active Ingredient: MECLOFENAMATE SODIUM
Strength: EQ 50MG BASE
Dosage Form/Route: CAPSULE;ORAL
Application: A071362 | Product #001
Applicant: AMERICAN THERAPEUTICS INC
Approved: Feb 10, 1987 | RLD: No | RS: No | Type: DISCN